FAERS Safety Report 5343878-X (Version None)
Quarter: 2007Q2

REPORT INFORMATION
  Report Type: 
  Country: None (occurrence: None)
  Receive Date: 20070531
  Receipt Date: 20070517
  Transmission Date: 20071010
  Serious: Yes (Other)
  Sender: FDA-Public Use
  Company Number: 2007SP008063

PATIENT
  Age: 41 Year
  Sex: Female
  Weight: 58.9676 kg

DRUGS (3)
  1. PROVENTIL-HFA [Suspect]
     Indication: ASTHMA
     Dosage: 2 DF; QID; PO
     Route: 048
  2. THEOPHYLLINE [Concomitant]
  3. PROVENTIL INHALER (ALBUREROL) [Concomitant]

REACTIONS (6)
  - ANAPHYLACTIC REACTION [None]
  - ASTHMA [None]
  - CARDIAC MURMUR [None]
  - CARDIOGENIC SHOCK [None]
  - FUNGAL INFECTION [None]
  - PHARYNGOLARYNGEAL PAIN [None]
